FAERS Safety Report 9890815 (Version 1)
Quarter: 2014Q1

REPORT INFORMATION
  Report Type: Spontaneous
  Country: US (occurrence: None)
  Receive Date: 20140207
  Receipt Date: 20140207
  Transmission Date: 20141002
  Serious: Yes (Other)
  Sender: FDA-Public Use
  Company Number: 20140036

PATIENT
  Age: 70 Year
  Sex: Male

DRUGS (1)
  1. NITROGLYCERIN [Suspect]
     Indication: ARTERIAL SPASM
     Route: 013

REACTIONS (4)
  - Bradycardia [None]
  - Hypotension [None]
  - Hyperhidrosis [None]
  - Cardiac disorder [None]
